FAERS Safety Report 12942344 (Version 1)
Quarter: 2016Q4

REPORT INFORMATION
  Report Type: Spontaneous
  Country: US (occurrence: US)
  Receive Date: 20161114
  Receipt Date: 20161114
  Transmission Date: 20170207
  Serious: No
  Sender: FDA-Public Use
  Company Number: US-PRESTIUM PHARMA-2016RN000123

PATIENT
  Age: 66 Year
  Sex: Female

DRUGS (1)
  1. DENAVIR [Suspect]
     Active Substance: PENCICLOVIR
     Indication: ORAL HERPES
     Dosage: UNK, USED SEVERAL TIMES A DAY
     Route: 061
     Dates: start: 201603

REACTIONS (1)
  - Drug ineffective [Unknown]

NARRATIVE: CASE EVENT DATE: 201603
